FAERS Safety Report 24017153 (Version 1)
Quarter: 2024Q2

REPORT INFORMATION
  Report Type: Spontaneous
  Country: US (occurrence: US)
  Receive Date: 20240627
  Receipt Date: 20240627
  Transmission Date: 20240715
  Serious: Yes (Other)
  Sender: FDA-Public Use
  Company Number: US-CIPLA LTD.-2024US06326

PATIENT

DRUGS (6)
  1. LEVETIRACETAM [Suspect]
     Active Substance: LEVETIRACETAM
     Indication: New onset refractory status epilepticus
     Dosage: UNK (MAXIMUM DOSE)
     Route: 042
  2. FOSPHENYTOIN [Suspect]
     Active Substance: FOSPHENYTOIN
     Indication: New onset refractory status epilepticus
     Dosage: UNK (MAXIMUM DOSE)
     Route: 042
  3. PHENOBARBITAL [Suspect]
     Active Substance: PHENOBARBITAL
     Indication: New onset refractory status epilepticus
     Dosage: UNK  (MAXIMUM DOSE)
     Route: 042
  4. VALPROIC ACID [Suspect]
     Active Substance: VALPROIC ACID
     Indication: New onset refractory status epilepticus
     Dosage: UNK (MAXIMUM DOSE)
     Route: 042
  5. LACOSAMIDE [Suspect]
     Active Substance: LACOSAMIDE
     Indication: New onset refractory status epilepticus
     Dosage: UNK (MAXIMUM DOSE)
     Route: 042
  6. IMMUNE GLOBULIN NOS [Suspect]
     Active Substance: IMMUNE GLOBULIN NOS
     Indication: New onset refractory status epilepticus
     Dosage: UNK
     Route: 042

REACTIONS (1)
  - Treatment failure [Unknown]
